FAERS Safety Report 10269775 (Version 1)
Quarter: 2014Q2

REPORT INFORMATION
  Report Type: Spontaneous
  Country: US (occurrence: None)
  Receive Date: 20140627
  Receipt Date: 20140627
  Transmission Date: 20141212
  Serious: Yes (Other)
  Sender: FDA-Public Use
  Company Number: None

PATIENT
  Age: 41 Year
  Sex: Female
  Weight: 68.04 kg

DRUGS (2)
  1. MIRVASO [Suspect]
     Indication: ROSACEA
     Dosage: 6 ONCE DAILY APPLIED TO A SURFACE, USUALLY THE SKIN
     Route: 061
     Dates: start: 20140506, end: 20140626
  2. MIRVASO [Suspect]
     Indication: ERYTHEMA
     Dosage: 6 ONCE DAILY APPLIED TO A SURFACE, USUALLY THE SKIN
     Route: 061
     Dates: start: 20140506, end: 20140626

REACTIONS (4)
  - Pruritus [None]
  - Skin burning sensation [None]
  - Rosacea [None]
  - Condition aggravated [None]
